FAERS Safety Report 7442474-8 (Version None)
Quarter: 2011Q2

REPORT INFORMATION
  Report Type: 
  Country: None (occurrence: None)
  Receive Date: 20110428
  Receipt Date: 20110422
  Transmission Date: 20111010
  Serious: No
  Sender: FDA-Public Use
  Company Number: US-PFIZER INC-2011088391

PATIENT
  Sex: Female

DRUGS (1)
  1. PREMARIN [Suspect]
     Dosage: 0.625 MG, UNK
     Dates: start: 20070101

REACTIONS (3)
  - FEELING ABNORMAL [None]
  - HORMONE LEVEL ABNORMAL [None]
  - CRYING [None]
